FAERS Safety Report 5885119-0 (Version None)
Quarter: 2008Q3

REPORT INFORMATION
  Report Type: 
  Country: None (occurrence: None)
  Receive Date: 20080912
  Receipt Date: 20080829
  Transmission Date: 20090109
  Serious: Yes (Other)
  Sender: FDA-Public Use
  Company Number: 2008S1015872

PATIENT
  Age: 60 Year
  Sex: Female

DRUGS (7)
  1. ZITHROMAX [Suspect]
     Indication: BRONCHITIS
     Dates: start: 20080807
  2. ZITHROMAX [Suspect]
     Indication: UPPER RESPIRATORY TRACT INFECTION
     Dates: start: 20080807
  3. LYRICA [Suspect]
     Indication: FIBROMYALGIA
     Dates: start: 20070516
  4. AMITRIPTYLINE HCL [Suspect]
     Dates: start: 20080813
  5. CYMBALTA [Concomitant]
  6. ULTRACET [Concomitant]
  7. TYLENOL (CAPLET) [Concomitant]

REACTIONS (4)
  - BRONCHITIS [None]
  - DRUG INTERACTION [None]
  - PARALYSIS [None]
  - UPPER RESPIRATORY TRACT INFECTION [None]
